FAERS Safety Report 24585245 (Version 2)
Quarter: 2024Q4

REPORT INFORMATION
  Report Type: Spontaneous
  Country: US (occurrence: US)
  Receive Date: 20241106
  Receipt Date: 20241113
  Transmission Date: 20250114
  Serious: No
  Sender: PFIZER
  Company Number: US-PFIZER INC-202400055396

PATIENT
  Age: 50 Year
  Sex: Female

DRUGS (1)
  1. VELSIPITY [Suspect]
     Active Substance: ETRASIMOD ARGININE
     Indication: Colitis ulcerative
     Dosage: 1 TABLET ORALLY ONCE A DAY
     Route: 048

REACTIONS (3)
  - Skin disorder [Recovered/Resolved]
  - Dry eye [Unknown]
  - Vascular skin disorder [Recovered/Resolved]
